FAERS Safety Report 15117723 (Version 1)
Quarter: 2018Q3

REPORT INFORMATION
  Report Type: Report from Study
  Country: JP (occurrence: JP)
  Receive Date: 20180707
  Receipt Date: 20180707
  Transmission Date: 20181010
  Serious: Yes (Hospitalization)
  Sender: FDA-Public Use
  Company Number: JP-AMGEN-JPNNI2018091776

PATIENT
  Age: 82 Year
  Sex: Male

DRUGS (14)
  1. AIMIX [Suspect]
     Active Substance: AMLODIPINE BESYLATE\IRBESARTAN
     Indication: HYPERTENSION
     Dosage: 1 DF, QD (IN THE MORNING)
     Route: 048
     Dates: start: 201512, end: 20180519
  2. CRESTOR [Concomitant]
     Active Substance: ROSUVASTATIN CALCIUM
     Indication: HYPERLIPIDAEMIA
     Dosage: 2.5 MG, QD (IN THE MORNING)
     Route: 048
     Dates: start: 201511
  3. URIEF [Concomitant]
     Active Substance: SILODOSIN
     Indication: BENIGN PROSTATIC HYPERPLASIA
     Dosage: 4 MG, BID (IN THE MORNING AND EVENING)
     Route: 048
     Dates: start: 201511
  4. DARBEPOETIN ALFA [Suspect]
     Active Substance: DARBEPOETIN ALFA
     Indication: CHRONIC KIDNEY DISEASE
     Dosage: 120 MUG, UNK
     Route: 065
     Dates: start: 20160314
  5. KREMEZIN [Concomitant]
     Active Substance: ACTIVATED CHARCOAL
     Indication: CHRONIC KIDNEY DISEASE
     Dosage: 2 G, TID
     Route: 048
     Dates: start: 201511
  6. FEXOFENADINE [Concomitant]
     Active Substance: FEXOFENADINE\FEXOFENADINE HYDROCHLORIDE
     Indication: PRURITUS
     Dosage: 60 MG, QD
     Route: 048
     Dates: start: 20160725
  7. FUROSEMIDE. [Suspect]
     Active Substance: FUROSEMIDE
     Indication: OEDEMA
     Dosage: 60 MG, QD (IN THE MORNING)
     Route: 048
     Dates: start: 20180403, end: 20180519
  8. TRAZENTA [Concomitant]
     Active Substance: LINAGLIPTIN
     Indication: DIABETES MELLITUS
     Dosage: 5 MG, QD (IN THE MORNING)
     Route: 048
     Dates: start: 201511
  9. FEBURIC [Concomitant]
     Active Substance: FEBUXOSTAT
     Indication: HYPERURICAEMIA
     Dosage: 10 MG, QD (IN THE MORNING)
     Route: 048
     Dates: start: 201511
  10. NATRIX [Suspect]
     Active Substance: INDAPAMIDE
     Indication: HYPERTENSION
     Dosage: 1 MG, QD (IN THE MORNING)
     Route: 048
     Dates: start: 20180326, end: 20180519
  11. DOXAZOSIN [Suspect]
     Active Substance: DOXAZOSIN\DOXAZOSIN MESYLATE
     Indication: HYPERTENSION
     Dosage: 2 MG, QD (IN THE MORNING)
     Route: 048
     Dates: start: 201512, end: 20180519
  12. CLOPIDOGREL [Concomitant]
     Active Substance: CLOPIDOGREL BISULFATE
     Indication: CEREBRAL INFARCTION
     Dosage: 50 MG, QD (IN HTE MORNING)
     Route: 048
     Dates: start: 201511
  13. LANSOPRAZOLE. [Concomitant]
     Active Substance: LANSOPRAZOLE
     Indication: GASTRIC ULCER
     Dosage: 15 MG, QD (IN THE MORNING)
     Route: 048
     Dates: start: 201511
  14. XARELTO [Concomitant]
     Active Substance: RIVAROXABAN
     Indication: CEREBRAL INFARCTION
     Dosage: 10 MG, QD (IN THE MORNING)
     Route: 048
     Dates: start: 201512, end: 20180612

REACTIONS (1)
  - Chronic kidney disease [Recovering/Resolving]

NARRATIVE: CASE EVENT DATE: 20180517
